FAERS Safety Report 12153063 (Version 1)
Quarter: 2016Q1

REPORT INFORMATION
  Report Type: Spontaneous
  Country: US (occurrence: US)
  Receive Date: 20160305
  Receipt Date: 20160305
  Transmission Date: 20160526
  Serious: Yes (Other)
  Sender: FDA-Public Use
  Company Number: US-BRISTOL-MYERS SQUIBB COMPANY-BMS-2016-016488

PATIENT
  Age: 38 Year
  Sex: Female
  Weight: 47.17 kg

DRUGS (1)
  1. OPDIVO [Suspect]
     Active Substance: NIVOLUMAB
     Indication: MALIGNANT MELANOMA
     Dosage: UNK
     Route: 042

REACTIONS (5)
  - Weight decreased [Unknown]
  - Thyroid disorder [Unknown]
  - Lymphadenectomy [Unknown]
  - Liver disorder [Unknown]
  - Malignant neoplasm progression [Unknown]
